FAERS Safety Report 24438322 (Version 1)
Quarter: 2024Q4

REPORT INFORMATION
  Report Type: Other
  Country: JP (occurrence: JP)
  Receive Date: 20241015
  Receipt Date: 20241015
  Transmission Date: 20250115
  Serious: Yes (Death)
  Sender: CHANGZHOU PHARMACEUTICAL FACTORY
  Company Number: JP-Changzhou Pharmaceutical Factory-2163068

PATIENT
  Age: 50 Year
  Sex: Male

DRUGS (9)
  1. PREGABALIN [Suspect]
     Active Substance: PREGABALIN
     Indication: Generalised anxiety disorder
  2. PREGABALIN [Suspect]
     Active Substance: PREGABALIN
     Indication: Drug dependence
  3. PREGABALIN [Suspect]
     Active Substance: PREGABALIN
     Indication: Insomnia
  4. AMLODIPINE [Concomitant]
     Active Substance: AMLODIPINE BESYLATE
  5. 7-AMINOFLUNITRAZEPAM [Concomitant]
     Active Substance: 7-AMINOFLUNITRAZEPAM
  6. FLUNITRAZEPAM [Concomitant]
     Active Substance: FLUNITRAZEPAM
  7. ZOLPIDEM [Concomitant]
     Active Substance: ZOLPIDEM TARTRATE
  8. LOXOPROFEN [Concomitant]
     Active Substance: LOXOPROFEN
  9. SUVOREXANT [Concomitant]
     Active Substance: SUVOREXANT

REACTIONS (3)
  - Toxicity to various agents [Fatal]
  - Product use in unapproved indication [Unknown]
  - Overdose [Unknown]
